FAERS Safety Report 24126266 (Version 1)
Quarter: 2024Q3

REPORT INFORMATION
  Report Type: Spontaneous
  Country: CH (occurrence: CH)
  Receive Date: 20240723
  Receipt Date: 20240723
  Transmission Date: 20241016
  Serious: Yes (Other)
  Sender: JOHNSON AND JOHNSON
  Company Number: CH-VIIV HEALTHCARE LIMITED-CH2024EME089080

PATIENT
  Sex: Male

DRUGS (2)
  1. RILPIVIRINE [Suspect]
     Active Substance: RILPIVIRINE
     Indication: Antiviral treatment
     Dosage: UNK UNK, Q2M
     Route: 065
     Dates: start: 20230509, end: 20240710
  2. VOCABRIA [Suspect]
     Active Substance: CABOTEGRAVIR SODIUM
     Indication: Antiviral treatment
     Dosage: UNK UNK, Q2M
     Route: 065
     Dates: start: 20230509, end: 20240710

REACTIONS (6)
  - Asthmatic crisis [Recovering/Resolving]
  - Arthralgia [Recovering/Resolving]
  - Asthma [Recovering/Resolving]
  - Chills [Recovering/Resolving]
  - Myalgia [Recovering/Resolving]
  - Influenza like illness [Recovering/Resolving]
